FAERS Safety Report 13704502 (Version 1)
Quarter: 2017Q2

REPORT INFORMATION
  Report Type: Spontaneous
  Country: US (occurrence: US)
  Receive Date: 20170629
  Receipt Date: 20170629
  Transmission Date: 20170830
  Serious: Yes (Hospitalization, Disabling, Other)
  Sender: FDA-Public Use
  Company Number: None

PATIENT
  Age: 27 Year
  Sex: Male
  Weight: 67.5 kg

DRUGS (4)
  1. EXCEDRIN [Concomitant]
     Active Substance: ACETAMINOPHEN\ASPIRIN\CAFFEINE
  2. LORAZEPAM. [Suspect]
     Active Substance: LORAZEPAM
     Indication: PANIC ATTACK
     Dosage: ?          OTHER STRENGTH:MG;QUANTITY:2 TABLET(S);?
     Route: 048
     Dates: start: 20170126, end: 20170228
  3. CLORAZEPAM [Suspect]
     Active Substance: CLONAZEPAM
     Indication: PANIC ATTACK
     Dosage: ?          OTHER STRENGTH:MG;QUANTITY:2 TABLET(S);?
     Route: 048
     Dates: start: 20170228, end: 20170421
  4. MAGNESIUM [Concomitant]
     Active Substance: MAGNESIUM

REACTIONS (13)
  - Withdrawal syndrome [None]
  - Mood swings [None]
  - Cognitive disorder [None]
  - Suicidal ideation [None]
  - Headache [None]
  - Burning sensation [None]
  - Emotional disorder [None]
  - Panic attack [None]
  - Fatigue [None]
  - Muscle disorder [None]
  - Decreased appetite [None]
  - Depersonalisation/derealisation disorder [None]
  - Insomnia [None]

NARRATIVE: CASE EVENT DATE: 20170224
